FAERS Safety Report 8221010-2 (Version None)
Quarter: 2012Q1

REPORT INFORMATION
  Report Type: 
  Country: None (occurrence: None)
  Receive Date: 20120320
  Receipt Date: 20120314
  Transmission Date: 20120608
  Serious: Yes (Other)
  Sender: FDA-Public Use
  Company Number: US-PFIZER INC-2012067702

PATIENT
  Sex: Female
  Weight: 74.376 kg

DRUGS (4)
  1. LANOXIN [Concomitant]
     Dosage: UNK
  2. CLONAZEPAM [Concomitant]
     Dosage: UNK
  3. LYRICA [Suspect]
     Indication: FIBROMYALGIA
     Dosage: 50 MG, 1X/DAY
     Route: 048
     Dates: start: 20110401, end: 20110401
  4. METOPROLOL [Concomitant]
     Dosage: UNK

REACTIONS (5)
  - PHOBIA OF DRIVING [None]
  - CATARACT [None]
  - SCOTOMA [None]
  - GLYCOSYLATED HAEMOGLOBIN INCREASED [None]
  - DRUG INTOLERANCE [None]
